FAERS Safety Report 4686805-0 (Version None)
Quarter: 2005Q2

REPORT INFORMATION
  Report Type: 
  Country: None (occurrence: None)
  Receive Date: 20050608
  Receipt Date: 20050527
  Transmission Date: 20051028
  Serious: Yes (Other)
  Sender: FDA-Public Use
  Company Number: 2005JP001101

PATIENT
  Age: 79 Year
  Sex: Male

DRUGS (3)
  1. FUNGUARD(MICAFUNGIN) INJECTION [Suspect]
     Indication: ASPERGILLOMA
     Dosage: 100.00 MG, UID/QD, IV DRIP
     Route: 041
     Dates: start: 20050511, end: 20050526
  2. PANSPORIN (CEFOTIAM HYDROCHLORIDE) INJECTION [Suspect]
     Dosage: 2.00 G, IV NOS
     Route: 042
     Dates: start: 20050524, end: 20050526
  3. MAXIPIME [Suspect]
     Dosage: 2.00 G, IV NOS
     Route: 042
     Dates: start: 20050511, end: 20050526

REACTIONS (1)
  - BLOOD POTASSIUM INCREASED [None]
